FAERS Safety Report 7435162-5 (Version None)
Quarter: 2011Q2

REPORT INFORMATION
  Report Type: 
  Country: None (occurrence: None)
  Receive Date: 20110425
  Receipt Date: 20110420
  Transmission Date: 20111010
  Serious: Yes (Death, Other)
  Sender: FDA-Public Use
  Company Number: PHHY2010US77578

PATIENT
  Sex: Male
  Weight: 73.66 kg

DRUGS (2)
  1. EXJADE [Suspect]
     Indication: 5Q MINUS SYNDROME
     Dosage: 3000 MG DAILY
     Route: 048
     Dates: start: 20100315
  2. EXJADE [Suspect]
     Dosage: 1500 MG DAILY
     Route: 048

REACTIONS (6)
  - NEOPLASM MALIGNANT [None]
  - SERUM FERRITIN INCREASED [None]
  - CHRONIC MYELOMONOCYTIC LEUKAEMIA [None]
  - PLATELET COUNT INCREASED [None]
  - HAEMOGLOBIN DECREASED [None]
  - DIARRHOEA [None]
